FAERS Safety Report 4590531-6 (Version None)
Quarter: 2005Q1

REPORT INFORMATION
  Report Type: 
  Country: None (occurrence: None)
  Receive Date: 20050224
  Receipt Date: 20050203
  Transmission Date: 20050727
  Serious: Yes (Hospitalization)
  Sender: FDA-Public Use
  Company Number: TH-ROCHE-394314

PATIENT
  Age: 41 Year
  Sex: Male

DRUGS (10)
  1. ENFUVIRTIDE [Suspect]
     Indication: HIV INFECTION
     Route: 058
     Dates: start: 20041228
  2. MOTILIUM [Concomitant]
     Dates: start: 20050202
  3. EUHYPNOS [Concomitant]
     Dosage: DRUG NAME STATED AS EUHYNOS.
     Dates: start: 20050202
  4. ACETAMINOPHEN [Concomitant]
     Dates: start: 20050202
  5. COTRIM [Concomitant]
     Dates: start: 20041214
  6. INDINAVIR [Concomitant]
     Dates: start: 20050124
  7. KALETRA [Concomitant]
     Dates: start: 20050124
  8. PREDNISOLONE [Concomitant]
     Dates: start: 20050124, end: 20050202
  9. CLONAZEPAM [Concomitant]
     Dates: start: 20050207
  10. UNSPECIFIED DRUG [Concomitant]
     Dosage: DRUG NAME STATED AS OPSIL TEAR EYE DROPS.
     Dates: start: 20050207

REACTIONS (11)
  - ALANINE AMINOTRANSFERASE INCREASED [None]
  - ASPARTATE AMINOTRANSFERASE INCREASED [None]
  - BILIRUBIN CONJUGATED INCREASED [None]
  - BLOOD ALKALINE PHOSPHATASE INCREASED [None]
  - BLOOD BILIRUBIN INCREASED [None]
  - BLOOD CHLORIDE DECREASED [None]
  - BLOOD GLUCOSE INCREASED [None]
  - GLOBULINS INCREASED [None]
  - MENINGITIS CRYPTOCOCCAL [None]
  - OPPORTUNISTIC INFECTION [None]
  - PYREXIA [None]
